FAERS Safety Report 25989919 (Version 1)
Quarter: 2025Q4

REPORT INFORMATION
  Report Type: Spontaneous
  Country: US (occurrence: None)
  Receive Date: 20251031
  Receipt Date: 20251031
  Transmission Date: 20260117
  Serious: Yes (Hospitalization)
  Sender: FDA-CTU
  Company Number: None

PATIENT
  Age: 66 Year
  Sex: Female

DRUGS (1)
  1. VENCLEXTA [Suspect]
     Active Substance: VENETOCLAX
     Dosage: OTHER FREQUENCY : EVERY 24 HOURS;?
     Route: 048

REACTIONS (5)
  - Pyrexia [None]
  - Palpitations [None]
  - Myocardial necrosis marker increased [None]
  - Arrhythmia [None]
  - Hepatic enzyme increased [None]
